FAERS Safety Report 24446779 (Version 1)
Quarter: 2024Q4

REPORT INFORMATION
  Report Type: Spontaneous
  Country: US (occurrence: US)
  Receive Date: 20241016
  Receipt Date: 20241016
  Transmission Date: 20250115
  Serious: Yes (Other)
  Sender: SANOFI AVENTIS
  Company Number: US-SANOFI-02246295

PATIENT

DRUGS (1)
  1. DUPIXENT [Suspect]
     Active Substance: DUPILUMAB
     Indication: Eosinophilic oesophagitis
     Dosage: UNK

REACTIONS (3)
  - Loss of consciousness [Unknown]
  - Dyspnoea [Unknown]
  - Arthralgia [Unknown]
